FAERS Safety Report 7346671-1 (Version None)
Quarter: 2011Q1

REPORT INFORMATION
  Report Type: 
  Country: None (occurrence: None)
  Receive Date: 20110311
  Receipt Date: 20110301
  Transmission Date: 20110831
  Serious: Yes (Other)
  Sender: FDA-Public Use
  Company Number: US-JNJFOC-20110301745

PATIENT
  Sex: Female
  Weight: 76.2 kg

DRUGS (6)
  1. REMICADE [Suspect]
     Indication: PSORIATIC ARTHROPATHY
     Route: 065
  2. HYPERTENSION MEDICATION [Concomitant]
     Indication: HYPERTENSION
  3. METHOTREXATE [Concomitant]
     Indication: PSORIATIC ARTHROPATHY
  4. ALL THERAPEUTIC PRODUCTS [Concomitant]
     Indication: THYROID DISORDER
  5. ^HEART MEDICATION^ [Concomitant]
     Indication: CARDIAC DISORDER
  6. FOLIC ACID [Concomitant]
     Indication: NUTRITIONAL SUPPORT

REACTIONS (6)
  - CONDITION AGGRAVATED [None]
  - MENTAL DISORDER [None]
  - MUSCULAR WEAKNESS [None]
  - SINUSITIS [None]
  - DRUG INEFFECTIVE [None]
  - DIZZINESS [None]
